FAERS Safety Report 4414190-8 (Version None)
Quarter: 2004Q3

REPORT INFORMATION
  Report Type: 
  Country: None (occurrence: None)
  Receive Date: 20040803
  Receipt Date: 20040730
  Transmission Date: 20050211
  Serious: Yes (Other)
  Sender: FDA-Public Use
  Company Number: PHBS2004TR10127

PATIENT
  Sex: Female

DRUGS (2)
  1. ZELMAC [Suspect]
  2. NEXIUM [Concomitant]

REACTIONS (2)
  - AMNESIA [None]
  - ANXIETY [None]
